FAERS Safety Report 9494356 (Version 1)
Quarter: 2013Q3

REPORT INFORMATION
  Report Type: Spontaneous
  Country: US (occurrence: None)
  Receive Date: 20130828
  Receipt Date: 20130828
  Transmission Date: 20140515
  Serious: Yes (Other)
  Sender: FDA-Public Use
  Company Number: ADR-2011-9997

PATIENT
  Age: 66 Year
  Sex: Male

DRUGS (2)
  1. BACLOFEN [Suspect]
     Indication: PAIN
  2. DILAUDID [Suspect]

REACTIONS (14)
  - Overdose [None]
  - Blood pressure decreased [None]
  - Convulsion [None]
  - Abasia [None]
  - Cerebrospinal fluid leakage [None]
  - Weight increased [None]
  - Withdrawal syndrome [None]
  - Vomiting [None]
  - Hypoaesthesia [None]
  - Malaise [None]
  - Drug ineffective [None]
  - Respiratory distress [None]
  - Sedation [None]
  - Oedema peripheral [None]
